FAERS Safety Report 6410427-4 (Version None)
Quarter: 2009Q4

REPORT INFORMATION
  Report Type: 
  Country: None (occurrence: None)
  Receive Date: 20091022
  Receipt Date: 20091012
  Transmission Date: 20100525
  Serious: No
  Sender: FDA-Public Use
  Company Number: DE-EISAI INC.-E7273-00077-SPO-DE

PATIENT
  Age: 54 Year
  Sex: Male

DRUGS (1)
  1. TARGRETIN [Suspect]
     Dosage: UNKNOWN
     Route: 048

REACTIONS (1)
  - PULMONARY FIBROSIS [None]
